FAERS Safety Report 5958373-4 (Version None)
Quarter: 2008Q4

REPORT INFORMATION
  Report Type: 
  Country: None (occurrence: None)
  Receive Date: 20081117
  Receipt Date: 20081110
  Transmission Date: 20090506
  Serious: No
  Sender: FDA-Public Use
  Company Number: US025000

PATIENT

DRUGS (3)
  1. FENTORA [Suspect]
     Indication: PAIN
     Dosage: 600 UG Q2HR BUCCAL
     Route: 002
  2. MORPHINE SULFATE [Concomitant]
  3. DILAUDID /00080902/ 7101/ [Concomitant]

REACTIONS (2)
  - DRUG PRESCRIBING ERROR [None]
  - MEDICATION ERROR [None]
